FAERS Safety Report 7239574 (Version 2)
Quarter: 2013Q2

REPORT INFORMATION
  Report Type: Spontaneous
  Country: US (occurrence: US)
  Receive Date: 20100107
  Receipt Date: 20130529
  Transmission Date: 20140414
  Serious: Yes (Death)
  Sender: FDA-Public Use
  Company Number: US-PFIZER INC-2010001546

PATIENT
  Age: 57 Year
  Sex: Female

DRUGS (7)
  1. CELECOXIB [Suspect]
     Dosage: UNK
     Route: 048
  2. DILTIAZEM HCL [Suspect]
     Dosage: UNK
     Route: 048
  3. ZOLPIDEM [Suspect]
     Dosage: UNK
     Route: 048
  4. LORAZEPAM [Suspect]
     Dosage: UNK
     Route: 048
  5. METHYLPHENIDATE [Suspect]
     Dosage: UNK
     Route: 048
  6. DULOXETINE [Suspect]
     Dosage: UNK
     Route: 048
  7. WARFARIN [Suspect]
     Dosage: UNK
     Route: 048

REACTIONS (4)
  - Completed suicide [Fatal]
  - Cardiac arrest [Fatal]
  - Respiratory arrest [Fatal]
  - Toxicity to various agents [None]
